FAERS Safety Report 8189348-5 (Version None)
Quarter: 2012Q1

REPORT INFORMATION
  Report Type: 
  Country: None (occurrence: None)
  Receive Date: 20120307
  Receipt Date: 20120227
  Transmission Date: 20120608
  Serious: Yes (Life-Threatening, Hospitalization, Other)
  Sender: FDA-Public Use
  Company Number: US-SANOFI-AVENTIS-2012SA009300

PATIENT
  Age: 62 Year
  Sex: Female
  Weight: 86.18 kg

DRUGS (28)
  1. FOSAMAX [Concomitant]
     Dosage: EVERY SUNDAY
  2. LASIX [Concomitant]
     Dosage: AM AND LUNCH
  3. PLAVIX [Concomitant]
     Dosage: IN AM
  4. MULTI-VITAMINS [Concomitant]
     Dosage: IN AM
  5. ELMIRON [Concomitant]
  6. MICROGENICS GLUCOSAMINE MSM AND CHONDROITIN UNFLAVOURED JOINT POWDER [Concomitant]
     Dosage: IN AM
  7. ACETAMINOPHEN [Concomitant]
  8. OPHTHALMOLOGICALS [Concomitant]
     Dosage: 1 DROP IN EACH EYE IN AM AND PM
  9. CARDIZEM CD [Concomitant]
     Dosage: IN AM
  10. ASPIRIN [Concomitant]
     Dosage: IN AM
  11. FISH OIL [Concomitant]
     Dosage: IN AM
  12. LANTUS [Suspect]
     Dosage: DOSE:45 UNIT(S)
     Route: 058
     Dates: start: 20081001
  13. COREG [Concomitant]
     Dosage: AM AND PM
  14. JANUVIA [Concomitant]
     Dosage: IN AM
  15. NORCO [Concomitant]
     Dosage: UP TO 4 TIMES DAILY AS NEEDED
  16. COLACE [Concomitant]
     Dosage: IN AM AND PM
  17. OPTICLICK [Suspect]
     Dates: start: 20081001
  18. ARANESP [Concomitant]
     Dosage: BIWEEKLY
  19. GLUCOTROL [Concomitant]
     Dosage: 10 MG AND 5 MG DAILY LUCH AND DINNER
  20. LYRICA [Concomitant]
     Dosage: IN AM
  21. VITAMIN B COMPLEX CAP [Concomitant]
     Dosage: IN AM
  22. NIACIN [Concomitant]
     Dosage: IN AM
  23. VITAMIN D [Concomitant]
     Dosage: IN AM
  24. LUMIGAN [Concomitant]
     Dosage: 1 DROP IN EACH EYE DAILY IN PM
  25. POTASSIUM CHLORIDE [Concomitant]
     Dosage: IN AM
  26. ALL OTHER THERAPEUTIC PRODUCTS [Concomitant]
     Dosage: UP TO 4 TIMES DAILY AS NEEDED
  27. PROTONIX [Concomitant]
     Dosage: IN AM
  28. ZOCOR [Concomitant]
     Dosage: AT NIGHT

REACTIONS (6)
  - RENAL FAILURE [None]
  - CHRONIC OBSTRUCTIVE PULMONARY DISEASE [None]
  - SEPTIC SHOCK [None]
  - PNEUMONIA [None]
  - STENT PLACEMENT [None]
  - CARDIAC FAILURE CONGESTIVE [None]
